FAERS Safety Report 4412016-X (Version None)
Quarter: 2004Q2

REPORT INFORMATION
  Report Type: 
  Country: None (occurrence: None)
  Receive Date: 20040630
  Receipt Date: 20040323
  Transmission Date: 20050107
  Serious: No
  Sender: FDA-Public Use
  Company Number: 04P-163-0254912-00

PATIENT
  Age: 74 Year
  Sex: Female

DRUGS (4)
  1. HUMIRA [Suspect]
     Indication: RHEUMATOID ARTHRITIS
     Dosage: 40 MG, 1 IN 2 WK, SUBCUTANEOUS
     Route: 058
     Dates: start: 20031216
  2. BIAXIN XL [Suspect]
     Indication: COUGH
     Dosage: PER ORAL
     Route: 048
     Dates: start: 20040315
  3. PREDNISONE [Concomitant]
  4. MULTIVITAMIN [Concomitant]

REACTIONS (7)
  - BURNING SENSATION [None]
  - CONTUSION [None]
  - COUGH [None]
  - DIARRHOEA [None]
  - ERYTHEMA [None]
  - HEADACHE [None]
  - PALMAR ERYTHEMA [None]
